FAERS Safety Report 5189838-3 (Version None)
Quarter: 2006Q4

REPORT INFORMATION
  Report Type: 
  Country: None (occurrence: None)
  Receive Date: 20061215
  Receipt Date: 20061205
  Transmission Date: 20070319
  Serious: Yes (Other)
  Sender: FDA-Public Use
  Company Number: 2006152416

PATIENT
  Age: 44 Year
  Sex: Male

DRUGS (15)
  1. HYDROXYZINE HCL [Suspect]
     Dosage: 75 MG, ORAL
     Route: 048
  2. MORPHINE [Suspect]
     Indication: BACK PAIN
     Dosage: 80 MG, ORAL
     Route: 048
     Dates: start: 20060731
  3. ATOVAQUONE [Suspect]
     Dosage: ORAL
     Route: 048
  4. CLARITHROMYCIN [Suspect]
     Dosage: 1000 MG, ORAL
     Route: 048
  5. ANSATIPIN (RIFABUTIN) [Suspect]
     Dosage: 300 MG, ORAL
     Route: 048
  6. ETHAMBUTOL HYDROCHLORIDE [Suspect]
     Dosage: 1 GRAM, ORAL
     Route: 048
  7. ALVITYL (VITAMINS NOS) [Concomitant]
  8. DIOSMIN (DIOSMIN) [Concomitant]
  9. OXAZEPAM [Concomitant]
  10. SERETIDE (FLUTICASONE PROPIONATE, SALMETEROL XINAFOATE) [Concomitant]
  11. ZOLPIDEM TARTRATE [Concomitant]
  12. TETRAZEPAM (TETRAZEPAM) [Concomitant]
  13. CLONAZEPAM [Concomitant]
  14. NICOTINE [Concomitant]
  15. GAVISCON [Concomitant]

REACTIONS (9)
  - BLADDER DISTENSION [None]
  - CULTURE URINE POSITIVE [None]
  - DYSURIA [None]
  - ENTEROCOCCAL INFECTION [None]
  - PRODUCTIVE COUGH [None]
  - PUBIC PAIN [None]
  - PYREXIA [None]
  - TACHYCARDIA [None]
  - URINARY RETENTION [None]
